FAERS Safety Report 15488668 (Version 8)
Quarter: 2020Q3

REPORT INFORMATION
  Report Type: Spontaneous
  Country: FR (occurrence: FR)
  Receive Date: 20181011
  Receipt Date: 20200807
  Transmission Date: 20201102
  Serious: Yes (Life-Threatening, Hospitalization)
  Sender: FDA-Public Use
  Company Number: FR-009507513-1810FRA004081

PATIENT
  Age: 70 Year
  Sex: Male
  Weight: 70 kg

DRUGS (16)
  1. NOVO?NORM [Suspect]
     Active Substance: REPAGLINIDE
     Indication: TYPE 2 DIABETES MELLITUS
     Dosage: 2 MG, QD
     Route: 048
  2. CISPLATIN. [Suspect]
     Active Substance: CISPLATIN
     Indication: LUNG NEOPLASM MALIGNANT
     Dosage: 200 MG, QD
     Route: 042
     Dates: start: 20180829, end: 20180829
  3. ZOPHREN (ONDANSETRON HYDROCHLORIDE) [Suspect]
     Active Substance: ONDANSETRON HYDROCHLORIDE
     Indication: PROPHYLAXIS
  4. ZOPHREN (ONDANSETRON HYDROCHLORIDE) [Suspect]
     Active Substance: ONDANSETRON HYDROCHLORIDE
     Indication: NAUSEA
  5. CORTANCYL [Suspect]
     Active Substance: PREDNISONE
     Indication: CHEMOTHERAPY
     Dosage: 20 MG, QD
     Route: 048
     Dates: start: 20180830, end: 20180831
  6. ZOPHREN (ONDANSETRON HYDROCHLORIDE) [Suspect]
     Active Substance: ONDANSETRON HYDROCHLORIDE
     Indication: VOMITING
     Dosage: 8 MG, QD
     Route: 048
     Dates: start: 20180829, end: 20180831
  7. EMEND [Suspect]
     Active Substance: APREPITANT
     Indication: VOMITING
     Dosage: 125 MG, QD
     Route: 048
     Dates: start: 20180829, end: 20180829
  8. EMEND [Suspect]
     Active Substance: APREPITANT
     Indication: PROPHYLAXIS
     Dosage: 80 MG, QD
     Route: 048
     Dates: start: 20180830, end: 20180831
  9. EMEND [Suspect]
     Active Substance: APREPITANT
     Indication: NAUSEA
  10. METFORMIN [Suspect]
     Active Substance: METFORMIN HYDROCHLORIDE
     Indication: DIABETES MELLITUS
     Dosage: 3 DF, QD
     Route: 048
     Dates: end: 20181106
  11. ETOPOSIDE. [Suspect]
     Active Substance: ETOPOSIDE
     Indication: LUNG NEOPLASM MALIGNANT
     Dosage: 200 MG, QD
     Route: 042
     Dates: start: 20180829, end: 20180831
  12. EMEND [Suspect]
     Active Substance: APREPITANT
     Indication: PROPHYLAXIS OF NAUSEA AND VOMITING
  13. KARDEGIC [Suspect]
     Active Substance: ASPIRIN DL-LYSINE
     Indication: PROPHYLAXIS
     Dosage: 75 MG, QD
     Route: 048
  14. METHYLPREDNISOLONE. [Suspect]
     Active Substance: METHYLPREDNISOLONE
     Indication: CHEMOTHERAPY
     Dosage: 60 MG, QD
     Route: 042
     Dates: start: 20180829, end: 20180829
  15. ZOPHREN (ONDANSETRON HYDROCHLORIDE) [Suspect]
     Active Substance: ONDANSETRON HYDROCHLORIDE
     Indication: PROPHYLAXIS OF NAUSEA AND VOMITING
  16. BISOCE [Suspect]
     Active Substance: BISOPROLOL
     Indication: HYPERTENSION
     Dosage: 2.5 MG, QD
     Route: 048

REACTIONS (2)
  - Renal tubular necrosis [Not Recovered/Not Resolved]
  - Renal failure [Not Recovered/Not Resolved]

NARRATIVE: CASE EVENT DATE: 20180902
